FAERS Safety Report 25112132 (Version 1)
Quarter: 2025Q1

REPORT INFORMATION
  Report Type: Report from Study
  Country: US (occurrence: US)
  Receive Date: 20250324
  Receipt Date: 20250324
  Transmission Date: 20250409
  Serious: Yes (Other)
  Sender: GUERBET
  Company Number: US-GUERBET / LLC-US-20250049

PATIENT
  Sex: Female

DRUGS (2)
  1. ETHIODIZED OIL [Suspect]
     Active Substance: ETHIODIZED OIL
     Indication: Therapeutic embolisation
     Dosage: 1:3 OR 1:4 N-BCA GLUE IN ETHIODIZED OIL.
  2. ENBUCRILATE [Suspect]
     Active Substance: ENBUCRILATE
     Indication: Therapeutic embolisation

REACTIONS (2)
  - Embolism [Recovered/Resolved]
  - Product use in unapproved indication [Recovered/Resolved]
